FAERS Safety Report 7246525-5 (Version None)
Quarter: 2011Q1

REPORT INFORMATION
  Report Type: 
  Country: None (occurrence: None)
  Receive Date: 20110127
  Receipt Date: 20110114
  Transmission Date: 20110831
  Serious: Yes (Other)
  Sender: FDA-Public Use
  Company Number: FR-AMGEN-FRASP2011002445

PATIENT
  Age: 36 Year
  Sex: Female

DRUGS (5)
  1. ENBREL [Suspect]
     Indication: PRODUCT USED FOR UNKNOWN INDICATION
     Dosage: UNK
     Route: 058
     Dates: start: 20050101, end: 20101222
  2. OGAST [Concomitant]
     Dosage: UNK
     Route: 048
     Dates: start: 20030101
  3. DEROXAT [Concomitant]
     Dosage: UNK
     Dates: end: 20101101
  4. ENBREL [Suspect]
     Dosage: UNK
     Route: 058
     Dates: start: 20050101, end: 20101222
  5. RIVOTRIL [Concomitant]
     Dosage: UNK
     Dates: start: 20101101

REACTIONS (1)
  - DIFFUSE CUTANEOUS MASTOCYTOSIS [None]
